FAERS Safety Report 4793568-7 (Version None)
Quarter: 2005Q4

REPORT INFORMATION
  Report Type: 
  Country: None (occurrence: None)
  Receive Date: 20051006
  Receipt Date: 20050919
  Transmission Date: 20060501
  Serious: Yes (Death)
  Sender: FDA-Public Use
  Company Number: AND_0056_2005

PATIENT
  Age: 10 Month
  Sex: Male

DRUGS (1)
  1. NAPROXEN [Suspect]

REACTIONS (6)
  - ACCIDENTAL DEATH [None]
  - ACCIDENTAL DRUG INTAKE BY CHILD [None]
  - CARDIAC ARREST [None]
  - FOREIGN BODY ASPIRATION [None]
  - INJURY ASPHYXIATION [None]
  - RESPIRATORY ARREST [None]
